FAERS Safety Report 9146367 (Version 1)
Quarter: 2013Q1

REPORT INFORMATION
  Report Type: Spontaneous
  Country: US (occurrence: None)
  Receive Date: 20130214
  Receipt Date: 20130214
  Transmission Date: 20140127
  Serious: Yes (Death)
  Sender: FDA-Public Use
  Company Number: 2013020071

PATIENT
  Age: 38 Year
  Sex: Female

DRUGS (3)
  1. CARISOPRODOL (CARISOPRODOL) [Suspect]
  2. OXYCODONE [Suspect]
  3. DIAZEPAM (DIAZEPAM) [Suspect]

REACTIONS (2)
  - Cardiac arrest [None]
  - Respiratory arrest [None]
